FAERS Safety Report 18409246 (Version 2)
Quarter: 2020Q4

REPORT INFORMATION
  Report Type: Spontaneous
  Country: DE (occurrence: DE)
  Receive Date: 20201021
  Receipt Date: 20201106
  Transmission Date: 20210114
  Serious: Yes (Other)
  Sender: FDA-Public Use
  Company Number: NVSC2020DE278399

PATIENT
  Age: 40 Year
  Sex: Female

DRUGS (42)
  1. DUROGESIC SMAT [Suspect]
     Active Substance: FENTANYL
     Indication: CHOREOATHETOSIS
     Dosage: 100 UG, TID (TRANSDERMAL PATCH)
     Route: 062
  2. CLONIDINE. [Concomitant]
     Active Substance: CLONIDINE
     Indication: OPISTHOTONUS
     Dosage: 600 UG, QD
     Route: 048
  3. TRIHEXYPHENIDYL [Concomitant]
     Active Substance: TRIHEXYPHENIDYL
     Indication: CHOREOATHETOSIS
     Dosage: 120 MG, QD
     Route: 048
  4. CLONAZEPAM. [Concomitant]
     Active Substance: CLONAZEPAM
     Indication: OPISTHOTONUS
     Dosage: 8 MG, QD
     Route: 048
  5. BACLOFEN. [Concomitant]
     Active Substance: BACLOFEN
     Indication: MOVEMENT DISORDER
  6. DEXMEDETOMIDINE. [Concomitant]
     Active Substance: DEXMEDETOMIDINE
     Indication: CHOREOATHETOSIS
     Dosage: 1.6 UG/KG/H
     Route: 042
  7. DEXMEDETOMIDINE. [Concomitant]
     Active Substance: DEXMEDETOMIDINE
     Indication: OPISTHOTONUS
  8. TRIHEXYPHENIDYL [Concomitant]
     Active Substance: TRIHEXYPHENIDYL
     Indication: MOVEMENT DISORDER
  9. CLONAZEPAM. [Concomitant]
     Active Substance: CLONAZEPAM
     Indication: MOVEMENT DISORDER
  10. SUFENTA [Suspect]
     Active Substance: SUFENTANIL CITRATE
     Indication: OPISTHOTONUS
  11. SUFENTA [Suspect]
     Active Substance: SUFENTANIL CITRATE
     Indication: MOVEMENT DISORDER
  12. TETRABENAZINE. [Concomitant]
     Active Substance: TETRABENAZINE
     Indication: OPISTHOTONUS
  13. TRIHEXYPHENIDYL [Concomitant]
     Active Substance: TRIHEXYPHENIDYL
     Indication: OPISTHOTONUS
  14. TIAPRIDE [Concomitant]
     Active Substance: TIAPRIDE
     Indication: OPISTHOTONUS
     Dosage: 100 MG, QD
     Route: 048
  15. TETRABENAZINE. [Concomitant]
     Active Substance: TETRABENAZINE
     Indication: CHOREOATHETOSIS
     Dosage: 200 MG, QD
     Route: 048
  16. MIDAZOLAM. [Concomitant]
     Active Substance: MIDAZOLAM
     Indication: MOVEMENT DISORDER
  17. HALOPERIDOL. [Suspect]
     Active Substance: HALOPERIDOL
     Indication: OPISTHOTONUS
  18. DUROGESIC SMAT [Suspect]
     Active Substance: FENTANYL
     Indication: OPISTHOTONUS
  19. PROPOFOL. [Concomitant]
     Active Substance: PROPOFOL
     Indication: CHOREOATHETOSIS
     Dosage: 5.45 MG/KG, QH
     Route: 042
  20. PROPOFOL. [Concomitant]
     Active Substance: PROPOFOL
     Indication: MOVEMENT DISORDER
  21. TIAPRIDE [Concomitant]
     Active Substance: TIAPRIDE
     Indication: MOVEMENT DISORDER
  22. OLANZAPINE. [Suspect]
     Active Substance: OLANZAPINE
     Indication: MOVEMENT DISORDER
  23. HALOPERIDOL. [Suspect]
     Active Substance: HALOPERIDOL
     Indication: CHOREOATHETOSIS
     Dosage: 3 MG, QD
     Route: 048
  24. LEVOMEPROMAZINE [Concomitant]
     Active Substance: LEVOMEPROMAZINE
     Indication: OPISTHOTONUS
     Dosage: 600 MG, QD
     Route: 048
  25. LEVOMEPROMAZINE [Concomitant]
     Active Substance: LEVOMEPROMAZINE
     Indication: MOVEMENT DISORDER
     Dosage: UNK
     Route: 065
  26. TIAPRIDE [Concomitant]
     Active Substance: TIAPRIDE
     Indication: CHOREOATHETOSIS
  27. TETRABENAZINE. [Concomitant]
     Active Substance: TETRABENAZINE
     Indication: MOVEMENT DISORDER
  28. BACLOFEN. [Concomitant]
     Active Substance: BACLOFEN
     Indication: OPISTHOTONUS
  29. OLANZAPINE. [Suspect]
     Active Substance: OLANZAPINE
     Indication: CHOREOATHETOSIS
  30. DUROGESIC SMAT [Suspect]
     Active Substance: FENTANYL
     Indication: MOVEMENT DISORDER
  31. LEVOMEPROMAZINE [Concomitant]
     Active Substance: LEVOMEPROMAZINE
     Indication: CHOREOATHETOSIS
     Dosage: 200 MG, QD
     Route: 042
  32. PROPOFOL. [Concomitant]
     Active Substance: PROPOFOL
     Indication: OPISTHOTONUS
  33. CLONAZEPAM. [Concomitant]
     Active Substance: CLONAZEPAM
     Indication: CHOREOATHETOSIS
  34. BACLOFEN. [Concomitant]
     Active Substance: BACLOFEN
     Indication: CHOREOATHETOSIS
     Dosage: 120 MG, QD
     Route: 048
  35. OLANZAPINE. [Suspect]
     Active Substance: OLANZAPINE
     Indication: OPISTHOTONUS
     Dosage: 30 MG, QD
     Route: 048
  36. HALOPERIDOL. [Suspect]
     Active Substance: HALOPERIDOL
     Indication: MOVEMENT DISORDER
  37. SUFENTA [Suspect]
     Active Substance: SUFENTANIL CITRATE
     Indication: CHOREOATHETOSIS
     Dosage: 0.3 UG/KG/H
     Route: 042
  38. DEXMEDETOMIDINE. [Concomitant]
     Active Substance: DEXMEDETOMIDINE
     Indication: MOVEMENT DISORDER
  39. CLONIDINE. [Concomitant]
     Active Substance: CLONIDINE
     Indication: CHOREOATHETOSIS
  40. CLONIDINE. [Concomitant]
     Active Substance: CLONIDINE
     Indication: MOVEMENT DISORDER
  41. MIDAZOLAM. [Concomitant]
     Active Substance: MIDAZOLAM
     Indication: CHOREOATHETOSIS
     Dosage: 0.23 MG/KG, QH
     Route: 042
  42. MIDAZOLAM. [Concomitant]
     Active Substance: MIDAZOLAM
     Indication: OPISTHOTONUS

REACTIONS (4)
  - Product use in unapproved indication [Unknown]
  - Off label use [Unknown]
  - Drug ineffective for unapproved indication [Unknown]
  - Dystonia [Recovered/Resolved]
